FAERS Safety Report 17326361 (Version 9)
Quarter: 2023Q4

REPORT INFORMATION
  Report Type: Spontaneous
  Country: US (occurrence: US)
  Receive Date: 20200127
  Receipt Date: 20231109
  Transmission Date: 20240110
  Serious: Yes (Other)
  Sender: FDA-Public Use
  Company Number: US-PFIZER INC-2020037704

PATIENT
  Age: 73 Year
  Sex: Female
  Weight: 86.168 kg

DRUGS (4)
  1. BOSULIF [Suspect]
     Active Substance: BOSUTINIB MONOHYDRATE
     Indication: Neoplasm malignant
     Dosage: 100 MG, DAILY
     Route: 048
     Dates: start: 20190201
  2. BOSULIF [Suspect]
     Active Substance: BOSUTINIB MONOHYDRATE
     Dosage: 100 MG
     Dates: start: 20221201
  3. BOSULIF [Suspect]
     Active Substance: BOSUTINIB MONOHYDRATE
     Dosage: 100 MG, ALTERNATE DAY
  4. BOSULIF [Suspect]
     Active Substance: BOSUTINIB MONOHYDRATE
     Dosage: 400 MG

REACTIONS (7)
  - Glaucoma [Unknown]
  - Eye operation [Unknown]
  - Diarrhoea [Recovered/Resolved]
  - Renal disorder [Unknown]
  - Constipation [Unknown]
  - Thyroid disorder [Unknown]
  - Off label use [Unknown]
